FAERS Safety Report 21664767 (Version 1)
Quarter: 2022Q4

REPORT INFORMATION
  Report Type: Spontaneous
  Country: CH (occurrence: CH)
  Receive Date: 20221130
  Receipt Date: 20221130
  Transmission Date: 20230112
  Serious: Yes (Hospitalization, Disabling, Other)
  Sender: FDA-Public Use
  Company Number: CH-SA-2022SA478897

PATIENT
  Age: 4 Year
  Sex: Male

DRUGS (2)
  1. RASBURICASE [Suspect]
     Active Substance: RASBURICASE
     Indication: Juvenile chronic myelomonocytic leukaemia
  2. CYTARABINE [Suspect]
     Active Substance: CYTARABINE
     Indication: Juvenile chronic myelomonocytic leukaemia

REACTIONS (21)
  - Cardiopulmonary failure [Recovered/Resolved]
  - Acute respiratory distress syndrome [Recovered/Resolved]
  - Respiratory failure [Recovered/Resolved]
  - Lung infiltration [Recovered/Resolved]
  - Pulmonary hypertension [Recovered/Resolved]
  - Multiple organ dysfunction syndrome [Recovered/Resolved]
  - Tumour lysis syndrome [Recovered/Resolved]
  - Electrolyte imbalance [Recovered/Resolved]
  - Hypernatraemia [Recovered/Resolved]
  - Lactic acidosis [Recovered/Resolved]
  - Cardiogenic shock [Recovered/Resolved]
  - Nervous system disorder [Recovered/Resolved]
  - Quadriplegia [Recovered/Resolved]
  - Aphasia [Recovered/Resolved]
  - Eye movement disorder [Recovered/Resolved]
  - Osmotic demyelination syndrome [Recovered/Resolved]
  - Cognitive disorder [Not Recovered/Not Resolved]
  - Dysphemia [Not Recovered/Not Resolved]
  - Septic shock [Recovered/Resolved]
  - Pyrexia [Recovered/Resolved]
  - Vocal cord paralysis [Recovered/Resolved]
